FAERS Safety Report 5933753-1 (Version None)
Quarter: 2008Q4

REPORT INFORMATION
  Report Type: 
  Country: None (occurrence: None)
  Receive Date: 20081024
  Receipt Date: 20081008
  Transmission Date: 20090506
  Serious: Yes (Hospitalization, Other)
  Sender: FDA-Public Use
  Company Number: DSA_28550_2006

PATIENT
  Age: 76 Year
  Sex: Male
  Weight: 61 kg

DRUGS (8)
  1. ENALAPRIL MALEATE [Suspect]
     Indication: HYPERTENSION
     Dosage: (20 MG QD), (10 MG QD), (10 MG QD)
     Dates: end: 20040301
  2. ENALAPRIL MALEATE [Suspect]
     Indication: HYPERTENSION
     Dosage: (20 MG QD), (10 MG QD), (10 MG QD)
     Dates: start: 20040301
  3. ALLEGIN [Suspect]
     Indication: RHINITIS ALLERGIC
     Dates: end: 20040101
  4. DAIO-KANZO-TO (DAIO-KANZO-TO) (NOT SPECIFIED) [Suspect]
     Indication: CONSTIPATION
     Dosage: (1 SACHET/ FREQUENCY UNKNOWN)
     Dates: start: 20040301, end: 20040101
  5. NIFEDIPINE [Concomitant]
  6. FAMOTIDINE [Concomitant]
  7. BROTIZOLAM [Concomitant]
  8. TERAZOSIN HCL [Concomitant]

REACTIONS (21)
  - ANAEMIA [None]
  - ATRIOVENTRICULAR BLOCK FIRST DEGREE [None]
  - BLOOD CREATINE PHOSPHOKINASE INCREASED [None]
  - BRADYCARDIA [None]
  - CARDIAC MURMUR [None]
  - CARDIOMEGALY [None]
  - CONDITION AGGRAVATED [None]
  - CONSTIPATION [None]
  - FLATULENCE [None]
  - GASTROINTESTINAL SOUNDS ABNORMAL [None]
  - HEART RATE IRREGULAR [None]
  - HEART SOUNDS ABNORMAL [None]
  - HYPERTENSION [None]
  - HYPOCHLORAEMIA [None]
  - HYPOKALAEMIA [None]
  - LIVER DISORDER [None]
  - METABOLIC ALKALOSIS [None]
  - MUSCULAR WEAKNESS [None]
  - OVERDOSE [None]
  - POTENTIATING DRUG INTERACTION [None]
  - PSEUDOALDOSTERONISM [None]
